FAERS Safety Report 8796656 (Version 4)
Quarter: 2013Q2

REPORT INFORMATION
  Report Type: Report from Study
  Country: US (occurrence: US)
  Receive Date: 20120919
  Receipt Date: 20130603
  Transmission Date: 20140414
  Serious: Yes (Hospitalization)
  Sender: FDA-Public Use
  Company Number: US-ASTRAZENECA-2012SE72133

PATIENT
  Age: 26517 Day
  Sex: Male

DRUGS (18)
  1. AZD6140 [Suspect]
     Indication: CORONARY ARTERY DISEASE
     Route: 048
     Dates: start: 20120123, end: 20120627
  2. AZD6140 [Suspect]
     Indication: CORONARY ARTERY DISEASE
     Route: 048
     Dates: start: 20120630
  3. LISINOPRIL [Concomitant]
     Indication: HYPERTENSION
     Route: 048
  4. OMEPRAZOLE [Concomitant]
     Indication: GASTRITIS PROPHYLAXIS
     Route: 048
     Dates: end: 20120627
  5. AMBIEN [Concomitant]
     Indication: SEDATIVE THERAPY
     Route: 048
     Dates: start: 20120627, end: 20120628
  6. PRAVASTATIN [Concomitant]
     Indication: HYPERCHOLESTEROLAEMIA
     Route: 048
     Dates: end: 20120627
  7. GEMFIBROZIL [Concomitant]
     Indication: HYPERCHOLESTEROLAEMIA
     Route: 048
  8. COREG [Concomitant]
     Indication: HYPERTENSION
     Route: 048
  9. COREG [Concomitant]
     Indication: MYOCARDIAL INFARCTION
     Route: 048
  10. GLYBURIDE [Concomitant]
     Indication: TYPE 2 DIABETES MELLITUS
     Route: 048
  11. GLYBURIDE [Concomitant]
     Indication: BLOOD GLUCOSE ABNORMAL
     Route: 048
  12. ASA [Concomitant]
     Route: 048
     Dates: end: 20120123
  13. ASA [Concomitant]
     Route: 048
     Dates: start: 20120124, end: 20120627
  14. ASA [Concomitant]
     Route: 048
     Dates: start: 20120914
  15. METFORMIN [Concomitant]
     Indication: TYPE 2 DIABETES MELLITUS
     Route: 048
     Dates: end: 20120627
  16. METFORMIN [Concomitant]
     Indication: BLOOD GLUCOSE ABNORMAL
     Route: 048
     Dates: end: 20120627
  17. METFORMIN [Concomitant]
     Indication: TYPE 2 DIABETES MELLITUS
     Route: 048
     Dates: start: 20120630
  18. METFORMIN [Concomitant]
     Indication: BLOOD GLUCOSE ABNORMAL
     Route: 048
     Dates: start: 20120630

REACTIONS (2)
  - Haemorrhagic arteriovenous malformation [Recovered/Resolved]
  - Iron deficiency anaemia [Recovered/Resolved]
